FAERS Safety Report 13631379 (Version 1)
Quarter: 2017Q2

REPORT INFORMATION
  Report Type: Spontaneous
  Country: GB (occurrence: GB)
  Receive Date: 20170608
  Receipt Date: 20170608
  Transmission Date: 20170830
  Serious: Yes (Hospitalization, Other)
  Sender: FDA-Public Use
  Company Number: GB-BAYER-2017-103135

PATIENT
  Sex: Female

DRUGS (1)
  1. YASMIN ED, FILM-COATED TABLETS, 0.03 MG/3 MG [Suspect]
     Active Substance: DROSPIRENONE\ETHINYL ESTRADIOL
     Indication: MENSTRUAL DISORDER

REACTIONS (3)
  - Impaired gastric emptying [None]
  - Product use in unapproved indication [None]
  - Off label use [None]
